FAERS Safety Report 9918181 (Version 4)
Quarter: 2015Q1

REPORT INFORMATION
  Report Type: Spontaneous
  Country: IT (occurrence: IT)
  Receive Date: 20140223
  Receipt Date: 20140424
  Transmission Date: 20150721
  Serious: Yes (Other)
  Sender: FDA-Public Use
  Company Number: IT-MYLANLABS-2014S1003093

PATIENT
  Age: 60 Year
  Sex: Male

DRUGS (2)
  1. LANSOPRAZOLE. [Suspect]
     Active Substance: LANSOPRAZOLE
     Indication: TENDON PAIN
     Dosage: 1 DF TOTAL
     Route: 048
     Dates: start: 20140110, end: 20140110
  2. IBUPROFEN. [Suspect]
     Active Substance: IBUPROFEN
     Indication: TENDON PAIN
     Dosage: 1 DF TOTAL
     Route: 048
     Dates: start: 20140110, end: 20140110

REACTIONS (3)
  - Lip oedema [Recovering/Resolving]
  - Rash generalised [Recovering/Resolving]
  - Hypersensitivity [Recovering/Resolving]

NARRATIVE: CASE EVENT DATE: 20140110
